FAERS Safety Report 9695850 (Version 1)
Quarter: 2013Q4

REPORT INFORMATION
  Report Type: Spontaneous
  Country: US (occurrence: None)
  Receive Date: 20131118
  Receipt Date: 20131118
  Transmission Date: 20140711
  Serious: No
  Sender: FDA-Public Use
  Company Number: None

PATIENT
  Age: 37 Year
  Sex: Female
  Weight: 124.74 kg

DRUGS (2)
  1. ESCITALOPRAM 20MG [Suspect]
     Indication: DEPRESSION
     Dosage: 1 PILL 20MG DAILY
     Route: 048
     Dates: start: 20131001, end: 20131115
  2. ESCITALOPRAM 20MG [Suspect]
     Indication: ANXIETY
     Dosage: 1 PILL 20MG DAILY
     Route: 048
     Dates: start: 20131001, end: 20131115

REACTIONS (2)
  - Product substitution issue [None]
  - Depression [None]
